FAERS Safety Report 4767615-2 (Version None)
Quarter: 2005Q3

REPORT INFORMATION
  Report Type: 
  Country: None (occurrence: None)
  Receive Date: 20050912
  Receipt Date: 20050831
  Transmission Date: 20060218
  Serious: Yes (Other)
  Sender: FDA-Public Use
  Company Number: 2005122552

PATIENT
  Sex: Female

DRUGS (9)
  1. LIPITOR [Suspect]
     Indication: BLOOD CHOLESTEROL
     Dosage: 20 MG (20 MG,1 IN 1 D),ORAL
     Route: 048
  2. ZETIA [Suspect]
     Indication: BLOOD TRIGLYCERIDES
     Dosage: 10 MG (10 MG,1 IN 1 D)
     Dates: start: 20040101, end: 20050201
  3. DILTIAZEM [Concomitant]
  4. ZESTRIL [Concomitant]
  5. ISOSORBIDE MONONITRATE [Concomitant]
  6. HYDROCHLOROTHIAZIDE [Concomitant]
  7. PREMARIN [Concomitant]
  8. PREVACID [Concomitant]
  9. ELAVIL [Concomitant]

REACTIONS (4)
  - BILIARY TRACT DISORDER [None]
  - BLOOD TRIGLYCERIDES INCREASED [None]
  - CORONARY ARTERY OCCLUSION [None]
  - NERVOUSNESS [None]
